FAERS Safety Report 9855309 (Version 1)
Quarter: 2013Q4

REPORT INFORMATION
  Report Type: Spontaneous
  Country: US (occurrence: None)
  Receive Date: 20131226
  Receipt Date: 20131226
  Transmission Date: 20140711
  Serious: Yes (Hospitalization)
  Sender: FDA-Public Use
  Company Number: PHEH2013US005577

PATIENT
  Age: 7 Year
  Sex: Female

DRUGS (2)
  1. AFINITOR (RAD) UNKNOWN [Suspect]
     Indication: BRAIN NEOPLASM BENIGN
     Route: 048
     Dates: start: 20120226
  2. LAMICTAL (LAMOTRIGINE) [Concomitant]

REACTIONS (5)
  - Vomiting [None]
  - Diarrhoea [None]
  - Atypical pneumonia [None]
  - Pyrexia [None]
  - Stomatitis [None]
